FAERS Safety Report 16656993 (Version 5)
Quarter: 2019Q4

REPORT INFORMATION
  Report Type: Report from Study
  Country: DE (occurrence: DE)
  Receive Date: 20190801
  Receipt Date: 20191113
  Transmission Date: 20200122
  Serious: Yes (Hospitalization)
  Sender: FDA-Public Use
  Company Number: DE-ROCHE-2368149

PATIENT
  Age: 28 Year
  Sex: Female
  Weight: 68 kg

DRUGS (7)
  1. OCRELIZUMAB. [Suspect]
     Active Substance: OCRELIZUMAB
     Indication: MULTIPLE SCLEROSIS
     Route: 042
     Dates: start: 20180604
  2. SPASMEX [TROSPIUM CHLORIDE] [Concomitant]
     Indication: BLADDER DYSFUNCTION
     Route: 048
     Dates: start: 20180815
  3. PREGABALIN. [Concomitant]
     Active Substance: PREGABALIN
     Indication: BURNING SENSATION
  4. DEKRISTOL [Concomitant]
     Active Substance: CHOLECALCIFEROL
     Route: 048
     Dates: start: 20181213
  5. PREGABALIN. [Concomitant]
     Active Substance: PREGABALIN
     Indication: NEURALGIA
     Route: 048
     Dates: start: 201710
  6. OCRELIZUMAB. [Suspect]
     Active Substance: OCRELIZUMAB
     Route: 042
     Dates: start: 20181213
  7. OCRELIZUMAB. [Suspect]
     Active Substance: OCRELIZUMAB
     Route: 042
     Dates: start: 20180618

REACTIONS (6)
  - Panic attack [Recovering/Resolving]
  - Anxiety disorder [Not Recovered/Not Resolved]
  - Hyperventilation [Recovering/Resolving]
  - Thymus enlargement [Recovered/Resolved]
  - Sinus tachycardia [Recovering/Resolving]
  - Restlessness [Recovering/Resolving]

NARRATIVE: CASE EVENT DATE: 20190509
